FAERS Safety Report 4701236-2 (Version None)
Quarter: 2005Q2

REPORT INFORMATION
  Report Type: 
  Country: None (occurrence: None)
  Receive Date: 20050628
  Receipt Date: 20050511
  Transmission Date: 20051028
  Serious: Yes (Hospitalization)
  Sender: FDA-Public Use
  Company Number: JP-MERCK-0505USA01826

PATIENT
  Age: 54 Year
  Sex: Male

DRUGS (5)
  1. HYDROCORTONE PHOSPHATE INJECTION [Suspect]
     Route: 051
  2. HYDROCORTONE PHOSPHATE INJECTION [Suspect]
     Route: 051
  3. HYDROCORTONE PHOSPHATE INJECTION [Suspect]
     Route: 051
  4. DECADRON [Suspect]
     Route: 065
  5. DECADRON [Suspect]
     Route: 065

REACTIONS (4)
  - GLUCOSE TOLERANCE IMPAIRED [None]
  - HEPATIC FUNCTION ABNORMAL [None]
  - PIGMENTATION DISORDER [None]
  - THERAPEUTIC RESPONSE DECREASED [None]
